FAERS Safety Report 19995646 (Version 1)
Quarter: 2021Q4

REPORT INFORMATION
  Report Type: Spontaneous
  Country: US (occurrence: US)
  Receive Date: 20211026
  Receipt Date: 20211026
  Transmission Date: 20220303
  Serious: Yes (Hospitalization)
  Sender: FDA-Public Use
  Company Number: None

PATIENT
  Sex: Male

DRUGS (2)
  1. JADENU [Suspect]
     Active Substance: DEFERASIROX
     Indication: Sickle cell disease
     Route: 048
  2. JADENU [Suspect]
     Active Substance: DEFERASIROX
     Indication: Haemochromatosis

REACTIONS (1)
  - Blood bilirubin increased [None]
